FAERS Safety Report 10558470 (Version 3)
Quarter: 2014Q4

REPORT INFORMATION
  Report Type: Spontaneous
  Country: US (occurrence: None)
  Receive Date: 20141029
  Receipt Date: 20141222
  Transmission Date: 20150529
  Serious: Yes (Disabling, Other)
  Sender: FDA-Public Use
  Company Number: 2014SMT00098

PATIENT
  Age: 47 Year
  Sex: Female
  Weight: 72.6 kg

DRUGS (9)
  1. LASIX [Concomitant]
     Active Substance: FUROSEMIDE
  2. NEURONTIN [Concomitant]
     Active Substance: GABAPENTIN
  3. REGRANEX [Suspect]
     Active Substance: BECAPLERMIN
     Indication: WOUND
     Route: 061
     Dates: start: 20141009
  4. PLAVIX [Concomitant]
     Active Substance: CLOPIDOGREL BISULFATE
  5. LANTUS [Concomitant]
     Active Substance: INSULIN GLARGINE
  6. UNKNOWN MEDICATION FOR MYASTHENIA GRAVIS [Concomitant]
  7. LIPITOR [Concomitant]
     Active Substance: ATORVASTATIN CALCIUM
  8. NOVOLOG [Concomitant]
     Active Substance: INSULIN ASPART
  9. ASPIRIN. [Concomitant]
     Active Substance: ASPIRIN

REACTIONS (13)
  - Osteomyelitis [None]
  - Application site erythema [None]
  - Application site pain [None]
  - Fear [None]
  - Dysstasia [None]
  - Pyrexia [None]
  - Mobility decreased [None]
  - Inappropriate schedule of drug administration [None]
  - Drug ineffective [None]
  - Application site swelling [None]
  - Wound complication [None]
  - Abasia [None]
  - Hypersensitivity [None]

NARRATIVE: CASE EVENT DATE: 20141009
